FAERS Safety Report 15839778 (Version 1)
Quarter: 2019Q1

REPORT INFORMATION
  Report Type: Report from Study
  Country: US (occurrence: US)
  Receive Date: 20190117
  Receipt Date: 20190117
  Transmission Date: 20190417
  Serious: Yes (Hospitalization)
  Sender: FDA-Public Use
  Company Number: US-GILEAD-2019-0385332

PATIENT
  Age: 61 Year
  Sex: Female

DRUGS (1)
  1. AZTREONAM LYSINE [Suspect]
     Active Substance: AZTREONAM LYSINE
     Indication: BRONCHIECTASIS
     Dosage: 75 MG, TID, 28 DAYS ON, THEN 28 DAYS OFF
     Route: 055
     Dates: start: 20180808

REACTIONS (2)
  - Sleep study [Unknown]
  - Off label use [Not Recovered/Not Resolved]

NARRATIVE: CASE EVENT DATE: 20180808
